FAERS Safety Report 18606433 (Version 1)
Quarter: 2020Q4

REPORT INFORMATION
  Report Type: Spontaneous
  Country: US (occurrence: US)
  Receive Date: 20201211
  Receipt Date: 20201211
  Transmission Date: 20210114
  Serious: No
  Sender: FDA-Public Use
  Company Number: US-PFIZER INC-2020471095

PATIENT
  Age: 50 Year
  Sex: Male
  Weight: 136.08 kg

DRUGS (1)
  1. NICOTROL [Suspect]
     Active Substance: NICOTINE
     Dosage: UNK

REACTIONS (3)
  - Poor quality product administered [Unknown]
  - Product complaint [Unknown]
  - Drug ineffective [Unknown]
